FAERS Safety Report 10173874 (Version 1)
Quarter: 2014Q2

REPORT INFORMATION
  Report Type: Spontaneous
  Country: US (occurrence: None)
  Receive Date: 20140514
  Receipt Date: 20140514
  Transmission Date: 20141212
  Serious: No
  Sender: FDA-Public Use
  Company Number: None

PATIENT
  Age: 43 Year
  Sex: Female

DRUGS (1)
  1. TRAMADOL 50MG NAVAL HOSPITAL BREMERTON [Suspect]
     Indication: ARTHRITIS
     Dosage: 1-2 PILLS EVERY 6 HOURS TAKEN BY MOUTH
     Route: 048

REACTIONS (3)
  - Myalgia [None]
  - Pain in extremity [None]
  - Musculoskeletal pain [None]
